FAERS Safety Report 5397171-X (Version None)
Quarter: 2007Q3

REPORT INFORMATION
  Report Type: 
  Country: None (occurrence: None)
  Receive Date: 20070725
  Receipt Date: 20070713
  Transmission Date: 20080115
  Serious: Yes (Other)
  Sender: FDA-Public Use
  Company Number: FR-PFIZER INC-2007057411

PATIENT
  Sex: Female

DRUGS (1)
  1. REVATIO [Suspect]

REACTIONS (3)
  - ANAEMIA [None]
  - HAEMATOCRIT DECREASED [None]
  - MICROCYTOSIS [None]
